FAERS Safety Report 7473907-9 (Version None)
Quarter: 2011Q2

REPORT INFORMATION
  Report Type: 
  Country: None (occurrence: None)
  Receive Date: 20110511
  Receipt Date: 20110426
  Transmission Date: 20111010
  Serious: Yes (Disabling)
  Sender: FDA-Public Use
  Company Number: JP-CELGENEUS-087-50794-11043084

PATIENT
  Age: 6 Decade
  Sex: Male

DRUGS (1)
  1. VIDAZA [Suspect]
     Dosage: 75 MILLIGRAM/SQ. METER
     Route: 058
     Dates: start: 20110324, end: 20110330

REACTIONS (1)
  - VENOOCCLUSIVE LIVER DISEASE [None]
